FAERS Safety Report 9464140 (Version 3)
Quarter: 2021Q4

REPORT INFORMATION
  Report Type: Spontaneous
  Country: CA (occurrence: None)
  Receive Date: 20130819
  Receipt Date: 20211105
  Transmission Date: 20220303
  Serious: Yes (Life-Threatening, Hospitalization)
  Sender: FDA-Public Use
  Company Number: CA-ROCHE-1262030

PATIENT
  Age: 46 Year
  Sex: Male
  Weight: 72.640 kg

DRUGS (19)
  1. CELLCEPT [Suspect]
     Active Substance: MYCOPHENOLATE MOFETIL\MYCOPHENOLATE MOFETIL HYDROCHLORIDE
     Indication: Product used for unknown indication
     Route: 065
  2. CELLCEPT [Suspect]
     Active Substance: MYCOPHENOLATE MOFETIL\MYCOPHENOLATE MOFETIL HYDROCHLORIDE
     Route: 065
  3. ALLOPURINOL [Suspect]
     Active Substance: ALLOPURINOL
     Indication: Product used for unknown indication
     Route: 065
  4. ARANESP [Suspect]
     Active Substance: DARBEPOETIN ALFA
     Indication: Product used for unknown indication
     Route: 058
  5. ARANESP [Suspect]
     Active Substance: DARBEPOETIN ALFA
     Route: 058
  6. EPREX [Suspect]
     Active Substance: ERYTHROPOIETIN
     Indication: Product used for unknown indication
     Route: 042
  7. ALFACALCIDOL [Suspect]
     Active Substance: ALFACALCIDOL
     Indication: Product used for unknown indication
     Route: 065
  8. AMLODIPINE BESYLATE [Concomitant]
     Active Substance: AMLODIPINE BESYLATE
     Route: 065
  9. AMLODIPINE BESYLATE [Concomitant]
     Active Substance: AMLODIPINE BESYLATE
     Route: 065
  10. ATACAND [Concomitant]
     Active Substance: CANDESARTAN CILEXETIL
     Route: 065
  11. CARDURA [Concomitant]
     Active Substance: DOXAZOSIN MESYLATE
     Route: 065
  12. IMURAN [Concomitant]
     Active Substance: AZATHIOPRINE
     Route: 065
  13. LASIX [Concomitant]
     Active Substance: FUROSEMIDE
     Route: 065
  14. METOPROLOL [Concomitant]
     Active Substance: METOPROLOL
     Route: 065
  15. MYFORTIC [Concomitant]
     Active Substance: MYCOPHENOLATE SODIUM
     Route: 065
  16. NORVASC [Concomitant]
     Active Substance: AMLODIPINE BESYLATE
     Route: 065
  17. PANTOPRAZOLE SODIUM [Concomitant]
     Active Substance: PANTOPRAZOLE SODIUM
     Route: 065
  18. METOPROLOL TARTRATE [Concomitant]
     Active Substance: METOPROLOL TARTRATE
  19. PREDNISONE [Concomitant]
     Active Substance: PREDNISONE

REACTIONS (3)
  - Anti-erythropoietin antibody negative [Unknown]
  - Aplasia pure red cell [Unknown]
  - Haemoglobin decreased [Unknown]
